FAERS Safety Report 6492095-9 (Version None)
Quarter: 2009Q4

REPORT INFORMATION
  Report Type: 
  Country: None (occurrence: None)
  Receive Date: 20091125
  Receipt Date: 20090520
  Transmission Date: 20100525
  Serious: Yes (Other)
  Sender: FDA-Public Use
  Company Number: 2009BH008339

PATIENT
  Age: 51 Year
  Sex: Female

DRUGS (20)
  1. DIANEAL [Suspect]
     Indication: PERITONEAL DIALYSIS
     Dosage: ; UNK ; IP
     Route: 033
     Dates: start: 20090501
  2. IRON [Concomitant]
  3. RENAGEL [Concomitant]
  4. CALCITRIOL [Concomitant]
  5. ASPIRIN [Concomitant]
  6. CHOLESTYRAMINE RESIN [Concomitant]
  7. PANTOPRAZOLE [Concomitant]
  8. FLAGYL [Concomitant]
  9. LANTUS [Concomitant]
  10. HUMALOG [Concomitant]
  11. METAMUCIL [Concomitant]
  12. METOPROLOL [Concomitant]
  13. LISINOPRIL [Concomitant]
  14. AMLODIPINE BESYLATE [Concomitant]
  15. REGLAN [Concomitant]
  16. TYLENOL W/ CODEINE NO. 3 [Concomitant]
  17. ALBUTEROL [Concomitant]
  18. ROSUVASTATIN CALCIUM [Concomitant]
  19. ULTRAM [Concomitant]
  20. ZOLOFT [Concomitant]

REACTIONS (3)
  - CONSTIPATION [None]
  - PERITONEAL DIALYSIS COMPLICATION [None]
  - PERITONITIS BACTERIAL [None]
